FAERS Safety Report 25195352 (Version 4)
Quarter: 2025Q3

REPORT INFORMATION
  Report Type: Report from Study
  Country: US (occurrence: US)
  Receive Date: 20250415
  Receipt Date: 20250803
  Transmission Date: 20251021
  Serious: Yes (Disabling)
  Sender: SANOFI AVENTIS
  Company Number: US-SA-2025SA103330

PATIENT
  Age: 73 Year
  Sex: Male

DRUGS (2)
  1. DUPIXENT [Suspect]
     Active Substance: DUPILUMAB
     Indication: Dermatitis atopic
     Dosage: 300 MG, QOW
     Route: 058
     Dates: start: 20230101, end: 20250501
  2. DUPIXENT [Suspect]
     Active Substance: DUPILUMAB
     Indication: Giant cell arteritis

REACTIONS (6)
  - Vision blurred [Recovering/Resolving]
  - Foreign body sensation in eyes [Unknown]
  - Eye disorder [Unknown]
  - Eye irritation [Unknown]
  - Eye inflammation [Unknown]
  - Product use in unapproved indication [Unknown]

NARRATIVE: CASE EVENT DATE: 20230101
